FAERS Safety Report 20422105 (Version 1)
Quarter: 2022Q1

REPORT INFORMATION
  Report Type: Spontaneous
  Country: DE (occurrence: DE)
  Receive Date: 20220203
  Receipt Date: 20220203
  Transmission Date: 20220424
  Serious: Yes (Hospitalization)
  Sender: FDA-Public Use
  Company Number: DE-JNJFOC-20220151476

PATIENT
  Sex: Female

DRUGS (1)
  1. SPRAVATO [Suspect]
     Active Substance: ESKETAMINE
     Indication: Depression
     Dosage: 2 TIMES A WEEK FOR 3 WEEKS

REACTIONS (3)
  - Suicidal ideation [Recovered/Resolved]
  - Egocentrism [Recovered/Resolved]
  - Depression [Unknown]
